FAERS Safety Report 12979843 (Version 1)
Quarter: 2016Q4

REPORT INFORMATION
  Report Type: Report from Study
  Country: BR (occurrence: BR)
  Receive Date: 20161128
  Receipt Date: 20161128
  Transmission Date: 20170207
  Serious: Yes (Hospitalization, Other)
  Sender: FDA-Public Use
  Company Number: PHHY2016BR162930

PATIENT
  Sex: Male
  Weight: 59 kg

DRUGS (1)
  1. ACLASTA [Suspect]
     Active Substance: ZOLEDRONIC ACID
     Indication: OSTEOPENIA
     Dosage: 5 MG, Q12MO
     Route: 042
     Dates: start: 20160725

REACTIONS (3)
  - Spinal disorder [Unknown]
  - Spinal pain [Unknown]
  - Gait disturbance [Unknown]
